FAERS Safety Report 11368007 (Version 1)
Quarter: 2015Q3

REPORT INFORMATION
  Report Type: Spontaneous
  Country: US (occurrence: US)
  Receive Date: 20150811
  Receipt Date: 20150811
  Transmission Date: 20151125
  Serious: No
  Sender: FDA-Public Use
  Company Number: US-ELI_LILLY_AND_COMPANY-US201202007695

PATIENT
  Age: 56 Year
  Sex: Male

DRUGS (3)
  1. AXIRON [Suspect]
     Active Substance: TESTOSTERONE
     Dosage: 60 MG, QD
  2. MUSCLE RELAXANTS [Concomitant]
     Active Substance: UNSPECIFIED INGREDIENT
  3. AXIRON [Suspect]
     Active Substance: TESTOSTERONE
     Indication: BLOOD TESTOSTERONE DECREASED
     Dosage: 30 MG, QD

REACTIONS (6)
  - Muscle spasms [Unknown]
  - Fatigue [Unknown]
  - Arthritis [Unknown]
  - Chondropathy [Unknown]
  - Blood growth hormone decreased [Unknown]
  - Blood testosterone decreased [Unknown]
